FAERS Safety Report 7098678-X (Version None)
Quarter: 2010Q4

REPORT INFORMATION
  Report Type: 
  Country: None (occurrence: None)
  Receive Date: 20101104
  Receipt Date: 20101014
  Transmission Date: 20110411
  Serious: Yes (Hospitalization)
  Sender: FDA-Public Use
  Company Number: 7021693

PATIENT
  Age: 81 Year
  Sex: Male

DRUGS (11)
  1. LEVOTHYROXINE SODIUM [Suspect]
     Indication: PRODUCT USED FOR UNKNOWN INDICATION
     Dosage: 1 DF (1 DF,1 IN 1 D) ORAL
     Route: 048
  2. ESOMEPRAZOLE MAGNESIUM [Suspect]
     Indication: PRODUCT USED FOR UNKNOWN INDICATION
     Dosage: 1 DF (1 DF,IN THE MORNING) ORAL
     Route: 048
  3. RAMIPRIL [Suspect]
     Indication: PRODUCT USED FOR UNKNOWN INDICATION
     Dosage: 1 DF (1 DF,IN THE EVENING) ORAL
     Route: 048
  4. KREDEX (CARVEDILOL) (6.25 MG, TABLET) (CARVEDILOL) [Suspect]
     Indication: PRODUCT USED FOR UNKNOWN INDICATION
     Dosage: 1 DF (0.5 DF,IN THE MORNING AND IN THE EVENING) ORAL
     Route: 048
  5. KARDEGIC (ACETYLSALICYLATE LYSINE) (75 MG, POWDER FOR ORAL SOLUTION) ( [Suspect]
     Indication: PRODUCT USED FOR UNKNOWN INDICATION
     Dosage: 1 DF (1 DF,IN THE MORNING) ORAL
     Route: 048
  6. FUROSEMIDE [Suspect]
     Indication: PRODUCT USED FOR UNKNOWN INDICATION
     Dosage: 1 DF (1 DF,IN THE MORNING) ORAL
     Route: 048
  7. RISPERDAL [Suspect]
     Indication: PRODUCT USED FOR UNKNOWN INDICATION
     Dosage: 0.5 DF (0.5 DF, IN THE MORNING) ORAL
     Route: 048
  8. EPLERENONE [Suspect]
     Indication: PRODUCT USED FOR UNKNOWN INDICATION
     Dosage: 0.5 DF (0.5 DF,IN THE MORNING) ORAL
     Route: 048
  9. ELISOR (PRAVASTATIN SODIUM) (40 MG, TABLET) (PRAVASTATIN SODIUM) [Suspect]
     Indication: PRODUCT USED FOR UNKNOWN INDICATION
     Dosage: 1 DF (1 DF,IN THE EVENING) ORAL
     Route: 048
  10. OMACOR [Suspect]
     Indication: PRODUCT USED FOR UNKNOWN INDICATION
     Dosage: 1 DF (1 DF,1 IN 1 D) ORAL
     Route: 048
  11. CETORNAN (ORNITHINE OXOGLURATE) (5 GRAM, POWDER FOR ORAL SOLUTION) (OR [Suspect]
     Indication: PRODUCT USED FOR UNKNOWN INDICATION
     Dosage: 2 DF (1 DF,AT MIDDAY AND IN THE EVENING) ORAL
     Route: 048

REACTIONS (1)
  - THROMBOCYTOPENIA [None]
